FAERS Safety Report 23124131 (Version 1)
Quarter: 2023Q4

REPORT INFORMATION
  Report Type: Spontaneous
  Country: US (occurrence: None)
  Receive Date: 20231027
  Receipt Date: 20231027
  Transmission Date: 20240110
  Serious: Yes (Life-Threatening, Disabling, Other)
  Sender: FDA-Public Use
  Company Number: None

PATIENT
  Age: 77 Year
  Sex: Male
  Weight: 70.76 kg

DRUGS (1)
  1. LEVOFLOXACIN [Suspect]
     Active Substance: LEVOFLOXACIN
     Indication: Bacterial infection
     Dosage: FREQUENCY : DAILY;?
     Route: 048
     Dates: start: 20230918, end: 20230922

REACTIONS (14)
  - Joint swelling [None]
  - Chest pain [None]
  - Headache [None]
  - Dyspnoea [None]
  - Vision blurred [None]
  - Gait inability [None]
  - Heart rate irregular [None]
  - Insomnia [None]
  - Muscle spasms [None]
  - Tendon disorder [None]
  - Anal incontinence [None]
  - Arthropathy [None]
  - Nerve injury [None]
  - Pain [None]

NARRATIVE: CASE EVENT DATE: 20230922
